FAERS Safety Report 16855622 (Version 1)
Quarter: 2019Q3

REPORT INFORMATION
  Report Type: Spontaneous
  Country: FR (occurrence: FR)
  Receive Date: 20190926
  Receipt Date: 20190926
  Transmission Date: 20191005
  Serious: Yes (Hospitalization)
  Sender: FDA-Public Use
  Company Number: FR-TEVA-2019-FR-1111753

PATIENT
  Age: 33 Year
  Sex: Male

DRUGS (17)
  1. SOLUPRED (PREDNISOLONE SODIUM SULFOBENZOATE) [Suspect]
     Active Substance: PREDNISOLONE SODIUM METAZOATE
     Indication: SINUSITIS
     Route: 048
     Dates: start: 20120303, end: 20120305
  2. SOLUPRED (PREDNISOLONE SODIUM SULFOBENZOATE) [Suspect]
     Active Substance: PREDNISOLONE SODIUM METAZOATE
     Indication: SINUSITIS
     Route: 048
     Dates: start: 20120224, end: 20120226
  3. DOLIPRANE [Concomitant]
     Active Substance: ACETAMINOPHEN
     Dates: start: 20120220
  4. TRIFLUCAN 100 MG, G?LULE [Suspect]
     Active Substance: FLUCONAZOLE
     Indication: SINUSITIS
     Dosage: DOSE:2 UNIT(S)
     Route: 048
     Dates: start: 20120303, end: 20120305
  5. EXOMUC [Concomitant]
     Active Substance: ACETYLCYSTEINE
     Dates: start: 20120220
  6. HELICIDINE [Suspect]
     Active Substance: ESCARGOT
     Indication: SINUSITIS
     Dosage: DOSE:3 UNIT(S)
     Route: 048
     Dates: start: 20120224, end: 20120303
  7. PREDNISOLONE METASULPHOBENZOATE SODIUM [Suspect]
     Active Substance: PREDNISOLONE SODIUM METAZOATE
     Indication: SINUSITIS
     Dosage: UNK UNK,UNK
     Route: 048
     Dates: start: 20120303, end: 20120305
  8. RULID 150 MG, COMPRIM? ENROB? [Suspect]
     Active Substance: ROXITHROMYCIN
     Indication: SINUSITIS
     Dosage: 300 MILLIGRAM
     Route: 048
     Dates: start: 20120203, end: 20120205
  9. HEXASPRAY [Suspect]
     Active Substance: BICLOTYMOL
     Indication: PHARYNGEAL INFLAMMATION
     Dosage: DOSE:4 UNIT(S)
     Route: 002
     Dates: start: 20120303, end: 20120305
  10. AUGMENTIN [Suspect]
     Active Substance: AMOXICILLIN\CLAVULANATE POTASSIUM
     Indication: SINUSITIS
     Dosage: DOSE:3 UNIT(S)
     Route: 048
     Dates: start: 20120224, end: 20120303
  11. TOPLEXIL [Concomitant]
     Dates: start: 20120220
  12. PREDNISOLONE METASULPHOBENZOATE SODIUM [Suspect]
     Active Substance: PREDNISOLONE SODIUM METAZOATE
     Dosage: 60 MG,QD
     Route: 048
     Dates: start: 20120224, end: 20120226
  13. ZITHROMAX [Suspect]
     Active Substance: AZITHROMYCIN DIHYDRATE
     Indication: TRACHEITIS
     Dosage: DOSE:2 UNIT(S)
     Route: 048
     Dates: start: 20120223, end: 20120224
  14. SURGAM [Concomitant]
     Active Substance: TIAPROFENIC ACID
     Dates: start: 20120220
  15. ELUDRIL (CHLORHEXIDINE GLUCONATE\CHLOROBUTANOL) [Suspect]
     Active Substance: CHLORHEXIDINE GLUCONATE\CHLOROBUTANOL
     Indication: STOMATITIS
     Dosage: FREQUENCY- 2 TO 4 TIME DAILY
     Route: 002
     Dates: start: 20120303, end: 20120305
  16. THALIDOMIDE [Concomitant]
     Active Substance: THALIDOMIDE
  17. TRIMEBUTINE [Concomitant]
     Active Substance: TRIMEBUTINE
     Indication: TRACHEITIS
     Dates: start: 20120220

REACTIONS (1)
  - Stevens-Johnson syndrome [Recovered/Resolved with Sequelae]

NARRATIVE: CASE EVENT DATE: 20120303
